FAERS Safety Report 9068409 (Version 2)
Quarter: 2013Q1

REPORT INFORMATION
  Report Type: Spontaneous
  Country: JP (occurrence: JP)
  Receive Date: 20130128
  Receipt Date: 20130201
  Transmission Date: 20140127
  Serious: Yes (Other)
  Sender: FDA-Public Use
  Company Number: PHHY2013JP006466

PATIENT
  Age: 60 Year
  Sex: Male
  Weight: 54 kg

DRUGS (6)
  1. 5-FLUOROURACIL [Suspect]
     Indication: COLON CANCER
     Dosage: 950 MG, QW
     Dates: start: 20070911
  2. ALEVIATIN [Interacting]
     Indication: INJURY
     Dosage: 220 MG, BID
     Route: 048
     Dates: start: 1996
  3. ALEVIATIN [Interacting]
     Dosage: 110 MG, BID
     Route: 048
     Dates: start: 20071016, end: 20071017
  4. PHENOBAL [Interacting]
     Indication: INJURY
     Dosage: 100 MG, BID
     Route: 048
     Dates: start: 1996
  5. PHENOBAL [Interacting]
     Dosage: 50 MG, BID
     Route: 048
     Dates: start: 20071016
  6. LEVOFOLINATE [Concomitant]
     Indication: COLON CANCER
     Dates: start: 20070911

REACTIONS (11)
  - Drug interaction [Unknown]
  - Anticonvulsant drug level increased [Recovered/Resolved]
  - Toxicity to various agents [Recovered/Resolved]
  - Eye disorder [Recovered/Resolved]
  - Decreased appetite [Recovered/Resolved]
  - Intestinal congestion [Recovered/Resolved]
  - Nausea [Recovered/Resolved]
  - Epigastric discomfort [Recovered/Resolved]
  - Fatigue [Recovered/Resolved]
  - Vomiting [Recovered/Resolved]
  - General physical health deterioration [Recovered/Resolved]
